FAERS Safety Report 9813052 (Version 1)
Quarter: 2014Q1

REPORT INFORMATION
  Report Type: Spontaneous
  Country: AU (occurrence: None)
  Receive Date: 20140108
  Receipt Date: 20140108
  Transmission Date: 20141002
  Serious: Yes (Hospitalization)
  Sender: FDA-Public Use
  Company Number: AU-ALKEM-000456

PATIENT
  Age: 41 Year
  Sex: Male

DRUGS (2)
  1. QUETIAPINE (QUETIAPINE) [Suspect]
     Dosage: 18.00-G-
  2. FLUOXETINE (FLUOXETINE) [Suspect]

REACTIONS (9)
  - Toxicity to various agents [None]
  - Exposure via ingestion [None]
  - Coma [None]
  - Distributive shock [None]
  - Pneumonia aspiration [None]
  - Hypotension [None]
  - Blood pressure systolic decreased [None]
  - Metabolic acidosis [None]
  - Blood lactic acid increased [None]
